FAERS Safety Report 10047067 (Version 2)
Quarter: 2014Q1

REPORT INFORMATION
  Report Type: Spontaneous
  Country: US (occurrence: US)
  Receive Date: 20140331
  Receipt Date: 20140331
  Transmission Date: 20141002
  Serious: No
  Sender: FDA-Public Use
  Company Number: US-MYLANLABS-2013S1005146

PATIENT
  Age: 52 Year
  Sex: Female
  Weight: 61.01 kg

DRUGS (1)
  1. FENTANYL TRANSDERMAL SYSTEM [Suspect]
     Indication: MIGRAINE
     Route: 062
     Dates: start: 201302

REACTIONS (1)
  - Medication error [Recovered/Resolved]
